FAERS Safety Report 13904164 (Version 2)
Quarter: 2018Q4

REPORT INFORMATION
  Report Type: Spontaneous
  Country: US (occurrence: US)
  Receive Date: 20170825
  Receipt Date: 20181226
  Transmission Date: 20190204
  Serious: No
  Sender: FDA-Public Use
  Company Number: US-ELI_LILLY_AND_COMPANY-US201708007772

PATIENT
  Age: 49 Year
  Sex: Female

DRUGS (3)
  1. FORTEO [Suspect]
     Active Substance: TERIPARATIDE
     Indication: PRODUCT USED FOR UNKNOWN INDICATION
     Dosage: UNK, UNKNOWN
     Route: 065
     Dates: start: 20170713
  2. FORTEO [Suspect]
     Active Substance: TERIPARATIDE
     Dosage: UNK, UNKNOWN
     Route: 065
     Dates: end: 20171018
  3. FORTEO [Suspect]
     Active Substance: TERIPARATIDE
     Dosage: UNK, UNKNOWN
     Route: 065
     Dates: start: 20171031

REACTIONS (12)
  - Chills [Unknown]
  - Gait disturbance [Unknown]
  - Foreign body [Unknown]
  - Nausea [Unknown]
  - Malaise [Recovered/Resolved]
  - Back pain [Unknown]
  - Influenza like illness [Not Recovered/Not Resolved]
  - Pain [Unknown]
  - Dizziness [Unknown]
  - Pain in extremity [Unknown]
  - Product dose omission [Unknown]
  - Feeling cold [Unknown]

NARRATIVE: CASE EVENT DATE: 20170801
